FAERS Safety Report 6860028-9 (Version None)
Quarter: 2010Q3

REPORT INFORMATION
  Report Type: 
  Country: None (occurrence: None)
  Receive Date: 20100720
  Receipt Date: 20100709
  Transmission Date: 20110219
  Serious: Yes (Other)
  Sender: FDA-Public Use
  Company Number: US-WYE-H08955109

PATIENT
  Sex: Female

DRUGS (2)
  1. PREMARIN [Suspect]
  2. PROVERA [Suspect]

REACTIONS (7)
  - BREAST CANCER METASTATIC [None]
  - CYSTITIS GLANDULARIS [None]
  - POST PROCEDURAL HAEMATOMA [None]
  - RENAL CYST [None]
  - SEROMA [None]
  - URINARY TRACT DISORDER [None]
  - URINARY TRACT INFECTION [None]
